FAERS Safety Report 19941226 (Version 1)
Quarter: 2021Q4

REPORT INFORMATION
  Report Type: Spontaneous
  Country: DE (occurrence: DE)
  Receive Date: 20211011
  Receipt Date: 20211011
  Transmission Date: 20220304
  Serious: No
  Sender: FDA-Public Use
  Company Number: DE-JAZZ-2021-DE-017377

PATIENT
  Age: 27 Year
  Sex: Male

DRUGS (2)
  1. SUNOSI [Suspect]
     Active Substance: SOLRIAMFETOL
     Indication: Product used for unknown indication
     Dosage: UNKNOWN DOSE AND FREQUENCY
     Route: 048
  2. PITOLISANT [Suspect]
     Active Substance: PITOLISANT
     Indication: Product used for unknown indication
     Dosage: UNK

REACTIONS (1)
  - Paranoia [Unknown]
